APPROVED DRUG PRODUCT: ATZUMI
Active Ingredient: DIHYDROERGOTAMINE MESYLATE
Strength: EQ 5.2MG BASE
Dosage Form/Route: POWDER;NASAL
Application: N217901 | Product #001
Applicant: SATSUMA PHARMACEUTICALS INC
Approved: Apr 30, 2025 | RLD: Yes | RS: Yes | Type: RX

PATENTS:
Patent 11872314 | Expires: Aug 4, 2037
Patent 12102754 | Expires: Oct 12, 2041
Patent 10792253 | Expires: Aug 4, 2037
Patent 10758532 | Expires: Dec 11, 2039
Patent 12263162 | Expires: Dec 11, 2039
Patent 11744967 | Expires: Oct 12, 2041

EXCLUSIVITY:
Code: NP | Date: Apr 30, 2028